FAERS Safety Report 22093835 (Version 1)
Quarter: 2023Q1

REPORT INFORMATION
  Report Type: Spontaneous
  Country: FR (occurrence: None)
  Receive Date: 20230314
  Receipt Date: 20230314
  Transmission Date: 20230417
  Serious: Yes (Hospitalization)
  Sender: FDA-Public Use
  Company Number: None

PATIENT
  Age: 45 Year
  Sex: Male

DRUGS (1)
  1. BACLOFEN [Suspect]
     Active Substance: BACLOFEN
     Indication: Alcoholism
     Route: 065

REACTIONS (6)
  - Psoriasis [None]
  - Palmoplantar keratoderma [None]
  - Skin exfoliation [None]
  - Contraindicated product administered [None]
  - Blood pressure abnormal [None]
  - Drug intolerance [None]
